FAERS Safety Report 4509731-6 (Version None)
Quarter: 2004Q4

REPORT INFORMATION
  Report Type: 
  Country: None (occurrence: None)
  Receive Date: 20041124
  Receipt Date: 20041122
  Transmission Date: 20050328
  Serious: Yes (Death, Other)
  Sender: FDA-Public Use
  Company Number: PHFR2004GB04286

PATIENT
  Age: 50 Year
  Sex: Male

DRUGS (2)
  1. CLOZAPINE [Suspect]
     Indication: SCHIZOPHRENIA
     Dosage: 350MG/DAY
     Route: 048
     Dates: start: 19950101
  2. TOLBUTAMIDE [Concomitant]
     Indication: DIABETES MELLITUS NON-INSULIN-DEPENDENT
     Dosage: 500 MG, TID
     Route: 048
     Dates: start: 20030501

REACTIONS (2)
  - PYELONEPHRITIS [None]
  - SEPSIS [None]
